FAERS Safety Report 7509540-X (Version None)
Quarter: 2011Q2

REPORT INFORMATION
  Report Type: 
  Country: None (occurrence: None)
  Receive Date: 20110519
  Receipt Date: 20110505
  Transmission Date: 20111010
  Serious: Yes (Hospitalization)
  Sender: FDA-Public Use
  Company Number: 2011MA005429

PATIENT
  Age: 17 Year
  Sex: Male

DRUGS (3)
  1. CARBAMAZEPINE [Suspect]
     Indication: EPILEPSY
     Dates: start: 20070501
  2. ZONISAMIDE [Concomitant]
  3. AMOXICILLIN [Concomitant]

REACTIONS (22)
  - GENERALISED ERYTHEMA [None]
  - CONJUNCTIVAL PALLOR [None]
  - GENITAL EROSION [None]
  - CORNEAL EROSION [None]
  - BLOOD LACTATE DEHYDROGENASE INCREASED [None]
  - BLOOD URINE PRESENT [None]
  - ORAL MUCOSA EROSION [None]
  - ASPARTATE AMINOTRANSFERASE INCREASED [None]
  - CONJUNCTIVITIS [None]
  - FACE OEDEMA [None]
  - ROSEOLOVIRUS TEST POSITIVE [None]
  - OEDEMA PERIPHERAL [None]
  - ALANINE AMINOTRANSFERASE INCREASED [None]
  - GAMMA-GLUTAMYLTRANSFERASE INCREASED [None]
  - BLOOD IMMUNOGLOBULIN G INCREASED [None]
  - EPIDERMAL NECROSIS [None]
  - BLISTER [None]
  - PYREXIA [None]
  - LIP EROSION [None]
  - ENANTHEMA [None]
  - PROTEIN URINE PRESENT [None]
  - RESPIRATORY DISORDER [None]
